FAERS Safety Report 25888935 (Version 1)
Quarter: 2025Q4

REPORT INFORMATION
  Report Type: Spontaneous
  Country: US (occurrence: US)
  Receive Date: 20251007
  Receipt Date: 20251007
  Transmission Date: 20260117
  Serious: Yes (Other)
  Sender: Onesource Specialty Pharma
  Company Number: US-STRIDES ARCOLAB LIMITED-2025OS000820

PATIENT
  Age: 55 Year
  Sex: Female

DRUGS (6)
  1. IBUPROFEN [Suspect]
     Active Substance: IBUPROFEN
     Indication: Pericarditis
     Dosage: 800 MILLIGRAM, TID
     Route: 065
     Dates: start: 2023, end: 202305
  2. IBUPROFEN [Suspect]
     Active Substance: IBUPROFEN
     Dosage: 200 MILLIGRAM, TID
     Route: 065
     Dates: start: 2023
  3. COLCHICINE [Suspect]
     Active Substance: COLCHICINE
     Indication: Pericarditis
     Dosage: 0.6 MILLIGRAM
     Route: 065
     Dates: start: 2023
  4. COLCHICINE [Suspect]
     Active Substance: COLCHICINE
     Dosage: 0.6 MILLIGRAM, BID
     Route: 065
     Dates: start: 2023, end: 202306
  5. COLCHICINE [Suspect]
     Active Substance: COLCHICINE
     Dosage: 0.6 MILLIGRAM, QD
     Route: 065
     Dates: start: 2023
  6. ASPIRIN [Concomitant]
     Active Substance: ASPIRIN
     Indication: Pericarditis
     Dosage: 325 MILLIGRAM
     Route: 065
     Dates: start: 2023

REACTIONS (3)
  - Pericarditis [None]
  - Drug ineffective for unapproved indication [Unknown]
  - Treatment noncompliance [Unknown]

NARRATIVE: CASE EVENT DATE: 20230101
